FAERS Safety Report 5858400-9 (Version None)
Quarter: 2008Q3

REPORT INFORMATION
  Report Type: 
  Country: None (occurrence: None)
  Receive Date: 20080822
  Receipt Date: 20080818
  Transmission Date: 20090109
  Serious: Yes (Hospitalization)
  Sender: FDA-Public Use
  Company Number: 2008SP016803

PATIENT
  Age: 38 Year
  Sex: Male
  Weight: 79 kg

DRUGS (11)
  1. TEMODAL [Suspect]
     Indication: OLIGODENDROGLIOMA
     Dosage: 150 MG/M2; QD; PO, 200 MG/M2; QD; PO
     Route: 048
     Dates: start: 20061221, end: 20061225
  2. TEMODAL [Suspect]
     Indication: OLIGODENDROGLIOMA
     Dosage: 150 MG/M2; QD; PO, 200 MG/M2; QD; PO
     Route: 048
     Dates: start: 20070228, end: 20070304
  3. TEMODAL [Suspect]
     Indication: OLIGODENDROGLIOMA
     Dosage: 150 MG/M2; QD; PO, 200 MG/M2; QD; PO
     Route: 048
     Dates: start: 20070328, end: 20070401
  4. TEMODAL [Suspect]
     Indication: OLIGODENDROGLIOMA
     Dosage: 150 MG/M2; QD; PO, 200 MG/M2; QD; PO
     Route: 048
     Dates: start: 20070509, end: 20070517
  5. BAKTAR (CON.) [Concomitant]
  6. KYTRIL (CON.) [Concomitant]
  7. ALEVIATIN (CON.) [Concomitant]
  8. INDERAL (CON.) [Concomitant]
  9. ULCERLMIN (CON.) [Concomitant]
  10. SOLANAX (CON.) [Concomitant]
  11. GASDOCK (CON.) [Concomitant]

REACTIONS (3)
  - BRAIN OEDEMA [None]
  - FEELING ABNORMAL [None]
  - STOMACH DISCOMFORT [None]
